FAERS Safety Report 7934987-7 (Version None)
Quarter: 2011Q4

REPORT INFORMATION
  Report Type: 
  Country: None (occurrence: None)
  Receive Date: 20111118
  Receipt Date: 20111102
  Transmission Date: 20120403
  Serious: Yes (Life-Threatening, Hospitalization)
  Sender: FDA-Public Use
  Company Number: 2011AP002590

PATIENT
  Age: 75 Year
  Sex: Female

DRUGS (3)
  1. TRAMADOL HCL [Concomitant]
  2. METHYLTHIONIUM CHLORIDE (METHYLTHIONIUM CHLORIDE) [Suspect]
     Indication: PARATHYROIDECTOMY
     Dosage: 5 MG
     Dates: start: 20110609, end: 20110609
  3. CITALOPRAM HYDROBROMIDE [Suspect]
     Indication: PRODUCT USED FOR UNKNOWN INDICATION
     Dosage: 20 MG, PO
     Route: 048
     Dates: end: 20110610

REACTIONS (3)
  - NEUROTOXICITY [None]
  - DRUG INTERACTION [None]
  - SEROTONIN SYNDROME [None]
